FAERS Safety Report 9174675 (Version 2)
Quarter: 2013Q2

REPORT INFORMATION
  Report Type: Spontaneous
  Country: US (occurrence: US)
  Receive Date: 20130320
  Receipt Date: 20130422
  Transmission Date: 20140414
  Serious: Yes (Death)
  Sender: FDA-Public Use
  Company Number: US-009507513-1303USA008798

PATIENT
  Age: 71 Year
  Sex: Male

DRUGS (1)
  1. NOXAFIL [Suspect]
     Dosage: UNK
     Dates: start: 20130110

REACTIONS (1)
  - Death [Fatal]
